FAERS Safety Report 21714054 (Version 1)
Quarter: 2022Q4

REPORT INFORMATION
  Report Type: Report from Study
  Country: FR (occurrence: None)
  Receive Date: 20221212
  Receipt Date: 20221212
  Transmission Date: 20230112
  Serious: Yes (Other)
  Sender: FDA-Public Use
  Company Number: FR-Merck Healthcare KGaA-9370990

PATIENT
  Sex: Female

DRUGS (1)
  1. LEVOTHYROXINE [Suspect]
     Active Substance: LEVOTHYROXINE
     Indication: Post procedural hypothyroidism

REACTIONS (6)
  - Choking [Unknown]
  - Paraesthesia [Unknown]
  - Paraesthesia oral [Unknown]
  - Skin disorder [Unknown]
  - Dyspnoea [Unknown]
  - Headache [Unknown]
